FAERS Safety Report 8880230 (Version 2)
Quarter: 2012Q4

REPORT INFORMATION
  Report Type: 
  Country: JP (occurrence: JP)
  Receive Date: 20121101
  Receipt Date: 20121116
  Transmission Date: 20130627
  Serious: No
  Sender: FDA-Public Use
  Company Number: JP-009507513-1210JPN014263

PATIENT
  Age: 68 Year
  Sex: Female
  Weight: 57 kg

DRUGS (15)
  1. PEGINTRON [Suspect]
     Indication: HEPATITIS C
     Dosage: 1.5 Microgram per kilogram, qw
     Route: 058
     Dates: start: 20120812, end: 20121013
  2. REBETOL [Suspect]
     Indication: HEPATITIS C
     Dosage: 400 mg, qd
     Route: 048
     Dates: start: 20120812, end: 20120914
  3. REBETOL [Suspect]
     Dosage: 200 mg, qd
     Route: 048
     Dates: start: 20120915, end: 20120923
  4. TELAVIC [Suspect]
     Indication: HEPATITIS C
     Dosage: 2250 mg, qd
     Route: 048
     Dates: start: 20120812, end: 20120914
  5. TELAVIC [Suspect]
     Dosage: 1500 mg, qd
     Route: 048
     Dates: start: 20120915, end: 20120923
  6. TELAVIC [Suspect]
     Dosage: 750 mg, qd
     Route: 048
     Dates: start: 20120924, end: 20120930
  7. TELAVIC [Suspect]
     Dosage: 500 mg, qd
     Route: 048
     Dates: start: 20121001, end: 20121005
  8. LOXONIN [Suspect]
     Indication: PROPHYLAXIS
     Dosage: 120 mg, qd
     Route: 048
     Dates: start: 20120812, end: 20121017
  9. OLMETEC [Concomitant]
     Indication: HYPERTENSION
     Dosage: 20 mg, qd
     Route: 048
  10. LOCHOL (FLUVASTATIN SODIUM) [Concomitant]
     Indication: HEPATITIS C
     Dosage: 30 mg, qd
     Route: 048
     Dates: start: 20120812, end: 20121017
  11. TALION (BEPOTASTINE BESYLATE) [Concomitant]
     Indication: PROPHYLAXIS
     Dosage: 20 mg, qd
     Route: 048
     Dates: start: 20120812, end: 20121017
  12. SELBEX [Concomitant]
     Indication: PROPHYLAXIS
     Dosage: 100 mg, qd
     Route: 048
     Dates: start: 20120812, end: 20121017
  13. ANTEBATE [Concomitant]
     Indication: PROPHYLAXIS
     Dosage: 5 g, qd
     Route: 061
     Dates: start: 20120812
  14. NEXIUM [Concomitant]
     Indication: PROPHYLAXIS
     Dosage: 20 mg, qd
     Route: 048
     Dates: start: 20120812
  15. FEBURIC [Concomitant]
     Indication: PROPHYLAXIS
     Dosage: 20 mg, qd
     Route: 048
     Dates: start: 20120813, end: 20121005

REACTIONS (1)
  - Haemoglobin decreased [Not Recovered/Not Resolved]
